FAERS Safety Report 8597356-5 (Version None)
Quarter: 2012Q3

REPORT INFORMATION
  Report Type: 
  Country: None (occurrence: None)
  Receive Date: 20120816
  Receipt Date: 20120814
  Transmission Date: 20120928
  Serious: No
  Sender: FDA-Public Use
  Company Number: US-PFIZER INC-2012172716

PATIENT
  Age: 82 Year
  Sex: Female
  Weight: 53.5 kg

DRUGS (3)
  1. SYNTHROID [Concomitant]
     Indication: THYROID DISORDER
     Dosage: 0.5 MG,DAILY
  2. LYRICA [Suspect]
     Indication: NEURALGIA
     Dosage: 50 MG, 2X/DAY
     Route: 048
     Dates: start: 20111208
  3. LYRICA [Suspect]
     Dosage: 50 MG, 3X/DAY
     Route: 048

REACTIONS (2)
  - WEIGHT INCREASED [None]
  - HAIR TEXTURE ABNORMAL [None]
